FAERS Safety Report 17550936 (Version 1)
Quarter: 2020Q1

REPORT INFORMATION
  Report Type: Spontaneous
  Country: US (occurrence: US)
  Receive Date: 20200317
  Receipt Date: 20200317
  Transmission Date: 20200409
  Serious: No
  Sender: FDA-Public Use
  Company Number: US-BRISTOL-MYERS SQUIBB COMPANY-BMS-2020-020200

PATIENT
  Sex: Female
  Weight: 128 kg

DRUGS (8)
  1. OPDIVO [Suspect]
     Active Substance: NIVOLUMAB
     Indication: NON-SMALL CELL LUNG CANCER METASTATIC
     Dosage: UNK, Q3WK (EVERY TWENTY-ONE DAYS)
     Route: 065
     Dates: start: 20200303
  2. IRON [Concomitant]
     Active Substance: IRON
     Indication: RED BLOOD CELL COUNT DECREASED
     Route: 065
  3. VENOFER [Concomitant]
     Active Substance: IRON SUCROSE
     Indication: RED BLOOD CELL COUNT DECREASED
     Dosage: SHE WILL GET THREE OR FOUR MORE OF THOSE ONCE A WEEK
     Route: 042
     Dates: start: 20200303
  4. TYLENOL WITH CODEINE [Concomitant]
     Active Substance: ACETAMINOPHEN\CODEINE PHOSPHATE
     Indication: BACK PAIN
     Route: 065
  5. XGEVA [Concomitant]
     Active Substance: DENOSUMAB
     Indication: BONE DISORDER
     Route: 065
  6. METOPROLOL. [Concomitant]
     Active Substance: METOPROLOL
     Indication: HYPERTENSION
     Dosage: 50 MILLIGRAM, QD
     Route: 065
  7. VITAMIN D [VITAMIN D NOS] [Concomitant]
     Active Substance: VITAMIN D NOS
     Indication: PRODUCT USED FOR UNKNOWN INDICATION
     Route: 065
  8. REPAGLINIDE. [Concomitant]
     Active Substance: REPAGLINIDE
     Indication: DIABETES MELLITUS
     Dosage: 0.5 MILLIGRAM 1/2 HOUR BEFORE MEALS
     Route: 065

REACTIONS (2)
  - Weight decreased [Unknown]
  - Off label use [Unknown]
